FAERS Safety Report 6195003-3 (Version None)
Quarter: 2009Q2

REPORT INFORMATION
  Report Type: 
  Country: None (occurrence: None)
  Receive Date: 20090519
  Receipt Date: 20090512
  Transmission Date: 20091009
  Serious: Yes (Other)
  Sender: FDA-Public Use
  Company Number: A0784658A

PATIENT
  Sex: Female
  Weight: 72 kg

DRUGS (5)
  1. AVAMYS [Suspect]
     Indication: RESPIRATORY DISORDER
     Dosage: 2PUFF THREE TIMES PER DAY
     Route: 045
     Dates: start: 20090405, end: 20090501
  2. EUTHYROX [Concomitant]
  3. SERETIDE [Concomitant]
  4. CETIRIZINE [Concomitant]
  5. OMEPRAZOLE [Concomitant]

REACTIONS (5)
  - DRUG ADMINISTRATION ERROR [None]
  - HYPERTENSION [None]
  - HYPERTHYROIDISM [None]
  - SALIVA ALTERED [None]
  - TACHYCARDIA [None]
